FAERS Safety Report 5319511-X (Version None)
Quarter: 2007Q2

REPORT INFORMATION
  Report Type: 
  Country: None (occurrence: None)
  Receive Date: 20070508
  Receipt Date: 20070426
  Transmission Date: 20071010
  Serious: Yes (Hospitalization)
  Sender: FDA-Public Use
  Company Number: US-ELI_LILLY_AND_COMPANY-US200704006146

PATIENT
  Age: 70 Year
  Sex: Female

DRUGS (2)
  1. FORTEO [Suspect]
     Indication: SPINAL FRACTURE
     Dosage: UNK, UNK
     Dates: start: 20061122, end: 20070101
  2. FORTEO [Suspect]
     Dosage: UNK, UNK
     Dates: start: 20070101

REACTIONS (12)
  - ASTHENIA [None]
  - BILE OUTPUT DECREASED [None]
  - BILIARY NEOPLASM [None]
  - BLOOD URINE PRESENT [None]
  - BONE DISORDER [None]
  - DEHYDRATION [None]
  - HERPES ZOSTER [None]
  - KIDNEY INFECTION [None]
  - NAUSEA [None]
  - RENAL DISORDER [None]
  - URETERAL DISORDER [None]
  - VOMITING [None]
